FAERS Safety Report 5456211-X (Version None)
Quarter: 2007Q3

REPORT INFORMATION
  Report Type: 
  Country: None (occurrence: None)
  Receive Date: 20070918
  Receipt Date: 20061114
  Transmission Date: 20080115
  Serious: No
  Sender: FDA-Public Use
  Company Number: US-ASTRAZENECA-2006UW24359

PATIENT
  Age: 19 Year
  Sex: Male

DRUGS (4)
  1. SEROQUEL [Suspect]
     Indication: BIPOLAR DISORDER
     Route: 048
  2. AZELEX [Concomitant]
  3. REGLAN [Concomitant]
  4. LAMISIL [Concomitant]

REACTIONS (1)
  - CHROMATOPSIA [None]
